FAERS Safety Report 8921489 (Version 2)
Quarter: 2013Q1

REPORT INFORMATION
  Report Type: Spontaneous
  Country: US (occurrence: US)
  Receive Date: 20121121
  Receipt Date: 20130124
  Transmission Date: 20140127
  Serious: No
  Sender: FDA-Public Use
  Company Number: US-009507513-1211USA007461

PATIENT
  Age: 2 None
  Sex: Male

DRUGS (2)
  1. NASONEX [Suspect]
     Indication: RESPIRATORY DISORDER
     Dosage: 1 SPRAY IN EACH NOSTRIL, QD
     Route: 055
     Dates: start: 201204, end: 201204
  2. NASONEX [Suspect]
     Dosage: 1 SPRAY IN EACH NOSTRIL, QD
     Route: 055
     Dates: start: 20121112, end: 20121116

REACTIONS (3)
  - Diarrhoea [Recovering/Resolving]
  - Diarrhoea [Not Recovered/Not Resolved]
  - Vomiting [Not Recovered/Not Resolved]
